FAERS Safety Report 5030587-X (Version None)
Quarter: 2006Q2

REPORT INFORMATION
  Report Type: 
  Country: None (occurrence: None)
  Receive Date: 20060614
  Receipt Date: 20060607
  Transmission Date: 20061013
  Serious: Yes (Death)
  Sender: FDA-Public Use
  Company Number: 2006-143685-NL

PATIENT
  Age: 53 Year
  Sex: Male

DRUGS (3)
  1. MIRTAZAPINE [Suspect]
     Dosage: 30 MG
  2. VENLAFAXINE HCL [Suspect]
  3. LAMOTRIGINE [Suspect]
     Dosage: 50 MG BID

REACTIONS (1)
  - SUDDEN DEATH [None]
